FAERS Safety Report 8287499-8 (Version None)
Quarter: 2012Q2

REPORT INFORMATION
  Report Type: 
  Country: None (occurrence: None)
  Receive Date: 20120416
  Receipt Date: 20120404
  Transmission Date: 20120825
  Serious: Yes (Hospitalization, Other)
  Sender: FDA-Public Use
  Company Number: US-ABBOTT-12P-163-0919720-00

PATIENT
  Sex: Female

DRUGS (1)
  1. HUMIRA [Suspect]
     Indication: PSORIASIS
     Dosage: 2EA 40MG/.08ML PENS/BX
     Route: 050
     Dates: start: 20120301

REACTIONS (3)
  - RASH [None]
  - PARTIAL SEIZURES [None]
  - BLOOD PRESSURE INCREASED [None]
